FAERS Safety Report 17349723 (Version 17)
Quarter: 2024Q1

REPORT INFORMATION
  Report Type: Report from Study
  Country: DE (occurrence: DE)
  Receive Date: 20200130
  Receipt Date: 20240227
  Transmission Date: 20240410
  Serious: Yes (Hospitalization, Other)
  Sender: FDA-Public Use
  Company Number: DE-ROCHE-2126374

PATIENT
  Age: 39 Year
  Sex: Female
  Weight: 70 kg

DRUGS (34)
  1. LYRICA [Suspect]
     Active Substance: PREGABALIN
     Indication: Pain
     Dosage: 250 MG, DAILY (100MG-MORNING-0-150MG -EVENING)
     Route: 048
  2. LYRICA [Suspect]
     Active Substance: PREGABALIN
     Dosage: 125 MG DAILY (50 MG-MORNING, 75 MG-EVENING)
     Route: 048
  3. LYRICA [Suspect]
     Active Substance: PREGABALIN
     Dosage: 200 MG, DAILY (MORNING-75 MG, 125 MG-EVENING)
     Route: 048
  4. LYRICA [Suspect]
     Active Substance: PREGABALIN
     Dosage: 100 MG, AS NEEDED
     Route: 048
  5. LYRICA [Suspect]
     Active Substance: PREGABALIN
     Dosage: 100 MG DAILY (25 MG-MORNING, 75 MG-EVENING)
     Route: 048
  6. LYRICA [Suspect]
     Active Substance: PREGABALIN
     Dosage: 50 MG, UNK
     Route: 048
  7. LYRICA [Suspect]
     Active Substance: PREGABALIN
     Dosage: UNK
     Route: 065
  8. LYRICA [Suspect]
     Active Substance: PREGABALIN
     Dosage: 50 MG, 2X/DAY
     Route: 065
  9. LYRICA [Suspect]
     Active Substance: PREGABALIN
     Dosage: 100 MILLIGRAM, QD
     Route: 048
  10. LYRICA [Suspect]
     Active Substance: PREGABALIN
     Dosage: UNK
     Route: 065
  11. OCREVUS [Suspect]
     Active Substance: OCRELIZUMAB
     Indication: Relapsing-remitting multiple sclerosis
     Dosage: 300 MG, SECOND INFUSION ON 22/MAY/2018
     Route: 042
  12. OCREVUS [Suspect]
     Active Substance: OCRELIZUMAB
     Dosage: 600 MG, UNK
     Route: 042
  13. OCREVUS [Suspect]
     Active Substance: OCRELIZUMAB
     Dosage: 300 MG
     Route: 042
  14. OCREVUS [Suspect]
     Active Substance: OCRELIZUMAB
     Dosage: 600 MG, 6 MONTHS
     Route: 042
  15. OCREVUS [Suspect]
     Active Substance: OCRELIZUMAB
     Dosage: 600 MG, UNK
     Route: 042
  16. OCREVUS [Suspect]
     Active Substance: OCRELIZUMAB
     Dosage: UNK
     Route: 042
  17. OCREVUS [Suspect]
     Active Substance: OCRELIZUMAB
     Dosage: 600 MG, UNK
     Route: 042
  18. OCREVUS [Suspect]
     Active Substance: OCRELIZUMAB
     Dosage: UNK
     Route: 042
  19. OCREVUS [Suspect]
     Active Substance: OCRELIZUMAB
     Dosage: UNK
     Route: 042
  20. OCREVUS [Suspect]
     Active Substance: OCRELIZUMAB
     Dosage: UNK
     Route: 065
  21. OCREVUS [Suspect]
     Active Substance: OCRELIZUMAB
     Dosage: 600 MG, 6 MONTHS
     Route: 042
  22. OCREVUS [Suspect]
     Active Substance: OCRELIZUMAB
     Dosage: 600 MG, 6 MONTHS
     Route: 042
  23. COMIRNATY (TOZINAMERAN) [Suspect]
     Active Substance: TOZINAMERAN
     Indication: Product used for unknown indication
     Dosage: UNK
     Route: 065
  24. VESIKUR [Concomitant]
     Active Substance: SOLIFENACIN SUCCINATE
     Indication: Product used for unknown indication
     Dosage: 10 MG, 1X/DAY (0-1-0)
     Route: 065
  25. LEVOTHYROXINE [Concomitant]
     Active Substance: LEVOTHYROXINE\LEVOTHYROXINE SODIUM
     Indication: Hypothyroidism
     Dosage: 25 MG, 1X/DAY (1-0-0)
     Route: 048
  26. Paracodin [Concomitant]
     Indication: Product used for unknown indication
     Dosage: UNK
     Route: 065
  27. CARVEDILOL [Concomitant]
     Active Substance: CARVEDILOL
     Indication: Hypertension
     Dosage: 12.5 MG, 1X/DAY (1-0-0)
     Route: 048
  28. CARVEDILOL [Concomitant]
     Active Substance: CARVEDILOL
     Dosage: 6.25 MG, 1X/DAY (IN THE MORNING, 1-0-0)
     Route: 048
  29. CARVEDILOL [Concomitant]
     Active Substance: CARVEDILOL
     Dosage: 6.25 MG, 1X/DAY
     Route: 048
  30. OXCARBAZEPINE [Concomitant]
     Active Substance: OXCARBAZEPINE
     Indication: Pain
     Dosage: 150 MG, 2X/DAY
     Route: 065
  31. OXCARBAZEPINE [Concomitant]
     Active Substance: OXCARBAZEPINE
     Indication: Trigeminal neuralgia
     Dosage: 150 MG IN MORNING, 100 MG IN EVENING (-1-0-1)
     Route: 065
  32. OXCARBAZEPINE [Concomitant]
     Active Substance: OXCARBAZEPINE
     Dosage: 250 MILLIGRAM, 150 MG-0-100 MG
     Route: 065
  33. BACLOFEN [Concomitant]
     Active Substance: BACLOFEN
     Indication: Muscle spasticity
     Dosage: 10 MG, 1X/DAY (0-0-1)
     Route: 065
  34. NORSPAN [Concomitant]
     Active Substance: BUPRENORPHINE
     Indication: Pain
     Dosage: WEEKLY REPLACEMENT(PAIN PATCH;CHANGED 1X WEEKLY)
     Route: 062

REACTIONS (64)
  - Ovarian adenoma [Recovered/Resolved]
  - Oedema [Not Recovered/Not Resolved]
  - Lipoedema [Not Recovered/Not Resolved]
  - Multiple sclerosis [Not Recovered/Not Resolved]
  - Pulpitis dental [Recovered/Resolved]
  - Abscess [Recovered/Resolved]
  - Trigeminal neuralgia [Recovered/Resolved]
  - Condition aggravated [Recovered/Resolved]
  - Neurodermatitis [Recovered/Resolved]
  - Atrioventricular block [Unknown]
  - Multiple sclerosis relapse [Not Recovered/Not Resolved]
  - Paralysis [Recovered/Resolved]
  - Mitral valve incompetence [Not Recovered/Not Resolved]
  - Dental fistula [Recovered/Resolved]
  - Automatic bladder [Recovered/Resolved]
  - Genital infection female [Unknown]
  - Arrhythmia [Recovered/Resolved]
  - Optic neuritis [Recovering/Resolving]
  - Tooth fracture [Recovered/Resolved]
  - Lymphoedema [Not Recovered/Not Resolved]
  - Vocal cord inflammation [Recovered/Resolved]
  - Abscess oral [Recovered/Resolved]
  - Hypotension [Not Recovered/Not Resolved]
  - Agitation [Recovered/Resolved]
  - Drug ineffective [Unknown]
  - Fatigue [Recovered/Resolved]
  - Nausea [Recovered/Resolved]
  - Abdominal pain upper [Recovered/Resolved]
  - Viral titre decreased [Recovered/Resolved]
  - Skin papilloma [Recovered/Resolved]
  - Sensory disturbance [Not Recovered/Not Resolved]
  - Auditory disorder [Recovered/Resolved]
  - Blood blister [Recovered/Resolved]
  - Dysuria [Recovered/Resolved]
  - Fluid retention [Not Recovered/Not Resolved]
  - Menstruation delayed [Recovered/Resolved]
  - Bladder disorder [Not Recovered/Not Resolved]
  - Hypersensitivity [Recovered/Resolved]
  - Eczema [Recovered/Resolved]
  - Tooth dislocation [Not Recovered/Not Resolved]
  - Neutrophil count increased [Recovered/Resolved]
  - Renal cyst [Not Recovered/Not Resolved]
  - Chest pain [Not Recovered/Not Resolved]
  - Vascular calcification [Not Recovered/Not Resolved]
  - Lymphocyte count decreased [Unknown]
  - Blood cholesterol increased [Recovering/Resolving]
  - Neuralgia [Recovered/Resolved]
  - Asthenia [Recovered/Resolved]
  - Neutrophil count increased [Recovered/Resolved]
  - Gait disturbance [Recovering/Resolving]
  - Back pain [Recovered/Resolved]
  - Musculoskeletal chest pain [Recovered/Resolved]
  - Eosinophilic oesophagitis [Not Recovered/Not Resolved]
  - Hordeolum [Recovering/Resolving]
  - Gastrointestinal disorder [Not Recovered/Not Resolved]
  - Electrocardiogram PR prolongation [Unknown]
  - Dysphagia [Not Recovered/Not Resolved]
  - Oesophageal pain [Recovered/Resolved]
  - Bowel movement irregularity [Unknown]
  - SARS-CoV-2 antibody test negative [Not Recovered/Not Resolved]
  - Weight increased [Recovered/Resolved]
  - Paraesthesia [Unknown]
  - B-lymphocyte count decreased [Unknown]
  - COVID-19 [Not Recovered/Not Resolved]

NARRATIVE: CASE EVENT DATE: 20180508
